FAERS Safety Report 7569624-7 (Version None)
Quarter: 2011Q2

REPORT INFORMATION
  Report Type: 
  Country: None (occurrence: None)
  Receive Date: 20110621
  Receipt Date: 20110621
  Transmission Date: 20111010
  Serious: Yes (Life-Threatening, Hospitalization)
  Sender: FDA-Public Use
  Company Number: None

PATIENT
  Age: 69 Year
  Sex: Female
  Weight: 107 kg

DRUGS (21)
  1. LOVENOX 100MG SYRINGE AVENTIS [Suspect]
     Indication: ATRIAL FIBRILLATION
     Dosage: 100MG DAILY SUBCUTANEOUSLY
     Route: 058
     Dates: start: 20110411, end: 20110422
  2. LOVENOX 100MG SYRINGE AVENTIS [Suspect]
     Indication: ATRIAL FIBRILLATION
     Dosage: 100MG DAILY SUBCUTANEOUSLY
     Route: 058
     Dates: start: 20110411
  3. OCCUVITE [Concomitant]
  4. CALCIUM ACETATE [Concomitant]
  5. FUROSEMIDE [Concomitant]
  6. ASPIRIN [Concomitant]
  7. SYNTHROID [Concomitant]
  8. APIDRA [Concomitant]
  9. CALCITRIOL [Concomitant]
  10. PREDNISONE [Concomitant]
  11. CARDIZEM [Concomitant]
  12. SPIRIVA [Concomitant]
  13. LOVEMIR [Concomitant]
  14. ADVAIR DISKUS 100/50 [Concomitant]
  15. NORVASC [Concomitant]
  16. SINGULAIR [Concomitant]
  17. RAMIPRIL [Concomitant]
  18. ARANESP [Concomitant]
  19. WARFARIN SODIUM [Suspect]
     Dosage: 7.5MG 6 DAYS 11.25MG 1 DAY DAILY ORAL
     Route: 048
     Dates: start: 20110411
  20. CRESTOR [Concomitant]
  21. METOPROLOL TARTRATE [Concomitant]

REACTIONS (3)
  - INTESTINAL POLYP [None]
  - PLATELET COUNT DECREASED [None]
  - RETROPERITONEAL HAEMORRHAGE [None]
